FAERS Safety Report 24313176 (Version 2)
Quarter: 2024Q3

REPORT INFORMATION
  Report Type: Spontaneous
  Country: DE (occurrence: DE)
  Receive Date: 20240912
  Receipt Date: 20240915
  Transmission Date: 20241017
  Serious: Yes (Disabling, Congenital Anomaly, Other)
  Sender: DEXCEL
  Company Number: None

PATIENT
  Sex: Female
  Weight: 2.6 kg

DRUGS (7)
  1. LAMOTRIGINE [Interacting]
     Active Substance: LAMOTRIGINE
     Indication: Epilepsy
     Dosage: 400 [MG/D ]/ UNTIL GW 8 50-0-100 MG/D, THEN INCREASED TO 2X200 MG/D
     Route: 064
     Dates: start: 20230311, end: 20231207
  2. LAMOTRIGINE [Interacting]
     Active Substance: LAMOTRIGINE
     Indication: Epilepsy
     Dosage: 400 [MG/D ]/ UNTIL GW 8 50-0-100 MG/D, THEN INCREASED TO 2X200 MG/D
     Route: 064
     Dates: start: 20230311, end: 20231207
  3. LAMOTRIGINE [Interacting]
     Active Substance: LAMOTRIGINE
     Indication: Epilepsy
     Dosage: 400 [MG/D ]/ UNTIL GW 8 50-0-100 MG/D, THEN INCREASED TO 2X200 MG/D
     Route: 064
     Dates: start: 20230311, end: 20231207
  4. FOLS?URE [Concomitant]
     Indication: Prophylaxis of neural tube defect
     Route: 064
     Dates: start: 20230311, end: 20231207
  5. LEVETIRACETAM [Interacting]
     Active Substance: LEVETIRACETAM
     Indication: Epilepsy
     Dosage: 5000 [MG/D ]/ UNTIL GW 8 2000 MG/D, THEN INCREASED TO 2X2500 MG/D
     Route: 064
     Dates: start: 20230311, end: 20231207
  6. LEVETIRACETAM [Interacting]
     Active Substance: LEVETIRACETAM
     Indication: Epilepsy
     Dosage: 5000 [MG/D ]/ UNTIL GW 8 2000 MG/D, THEN INCREASED TO 2X2500 MG/D
     Route: 064
     Dates: start: 20230311, end: 20231207
  7. LEVETIRACETAM [Interacting]
     Active Substance: LEVETIRACETAM
     Indication: Epilepsy
     Dosage: 5000 [MG/D ]/ UNTIL GW 8 2000 MG/D, THEN INCREASED TO 2X2500 MG/D
     Route: 064
     Dates: start: 20230311, end: 20231207

REACTIONS (3)
  - Limb reduction defect [Unknown]
  - Foetal exposure during pregnancy [Unknown]
  - Drug interaction [Unknown]

NARRATIVE: CASE EVENT DATE: 20231201
